FAERS Safety Report 9611754 (Version 1)
Quarter: 2013Q4

REPORT INFORMATION
  Report Type: Spontaneous
  Country: US (occurrence: US)
  Receive Date: 20131010
  Receipt Date: 20131010
  Transmission Date: 20140711
  Serious: No
  Sender: FDA-Public Use
  Company Number: US-PFIZER INC-2013289091

PATIENT
  Age: 68 Year
  Sex: Female
  Weight: 104 kg

DRUGS (4)
  1. SUTENT [Suspect]
     Indication: RENAL CANCER METASTATIC
     Dosage: 50 MG, CYCLIC
     Dates: start: 2013, end: 2013
  2. SUTENT [Suspect]
     Dosage: 25 MG, CYCLIC
     Dates: start: 2013
  3. BISOPROLOL [Concomitant]
     Indication: BLOOD PRESSURE ABNORMAL
     Dosage: 5 MG, 1X/DAY
  4. CARDIZEM [Concomitant]
     Indication: BLOOD PRESSURE ABNORMAL
     Dosage: 180 MG, 1X/DAY

REACTIONS (3)
  - Dysgeusia [Unknown]
  - Eating disorder [Unknown]
  - Fatigue [Unknown]
